FAERS Safety Report 9590199 (Version 1)
Quarter: 2013Q4

REPORT INFORMATION
  Report Type: Spontaneous
  Country: US (occurrence: US)
  Receive Date: 20131003
  Receipt Date: 20131003
  Transmission Date: 20140711
  Serious: No
  Sender: FDA-Public Use
  Company Number: US-AMGEN-USASP2012074990

PATIENT
  Sex: Female
  Weight: 88.44 kg

DRUGS (18)
  1. ENBREL [Suspect]
     Indication: RHEUMATOID ARTHRITIS
     Dosage: 50 MG, QWK
     Route: 058
  2. ARTHROTEC [Concomitant]
     Dosage: 50 UNK, UNK
  3. PREDNISONE [Concomitant]
     Dosage: 10 MG, UNK
  4. OXYCODONE / ACETAMINOPHEN [Concomitant]
     Dosage: 5-500 MG
  5. COMBIPATCH [Concomitant]
     Dosage: 0.05/0.14
  6. LEFLUNOMIDE [Concomitant]
     Dosage: 10 MG, UNK
  7. GABAPENTIN [Concomitant]
     Dosage: 100 MG, UNK
  8. HYDROCHLOROTH [Concomitant]
     Dosage: 25 MG, UNK
  9. ALPRAZOLAM [Concomitant]
     Dosage: 0.5 MG, UNK
  10. LEVOTHROID [Concomitant]
     Dosage: 25 MUG, UNK
  11. SAVELLA [Concomitant]
     Dosage: 12.5 MG, UNK
  12. CO Q 10                            /00517201/ [Concomitant]
     Dosage: UNK
  13. CALCIUM + VIT D [Concomitant]
     Dosage: 500 UNK, UNK
  14. FISH OIL [Concomitant]
     Dosage: UNK
  15. BENICAR [Concomitant]
     Dosage: 20 MG, UNK
  16. OXYCONTIN [Concomitant]
     Dosage: 10 MG CR, UNK
  17. TYLENOL                            /00020001/ [Concomitant]
     Dosage: 500 MG, UNK
  18. MAGNESIUM [Concomitant]
     Dosage: 300 MG, UNK

REACTIONS (3)
  - Rhinorrhoea [Unknown]
  - Pain in extremity [Unknown]
  - Back pain [Unknown]
